FAERS Safety Report 6180838-3 (Version None)
Quarter: 2009Q2

REPORT INFORMATION
  Report Type: 
  Country: None (occurrence: None)
  Receive Date: 20090506
  Receipt Date: 20090427
  Transmission Date: 20091009
  Serious: Yes (Life-Threatening)
  Sender: FDA-Public Use
  Company Number: FR-ASTRAZENECA-2006CG01960

PATIENT
  Age: 42 Year
  Sex: Male

DRUGS (1)
  1. NAROPIN [Suspect]
     Indication: LOCAL ANAESTHESIA
     Route: 058
     Dates: start: 20061116, end: 20061116

REACTIONS (6)
  - AGITATION [None]
  - CARDIAC ARREST [None]
  - CONVULSION [None]
  - HALLUCINATION [None]
  - MUSCLE RIGIDITY [None]
  - RESPIRATORY ARREST [None]
